FAERS Safety Report 14490989 (Version 3)
Quarter: 2018Q2

REPORT INFORMATION
  Report Type: Spontaneous
  Country: US (occurrence: US)
  Receive Date: 20180206
  Receipt Date: 20180507
  Transmission Date: 20180711
  Serious: No
  Sender: FDA-Public Use
  Company Number: US-PFIZER INC-2018048784

PATIENT
  Age: 41 Year
  Sex: Male

DRUGS (1)
  1. XELJANZ [Suspect]
     Active Substance: TOFACITINIB CITRATE
     Dosage: 5 MG, UNK
     Dates: start: 2017

REACTIONS (2)
  - Blood pressure increased [Unknown]
  - Acne [Unknown]

NARRATIVE: CASE EVENT DATE: 20171020
